FAERS Safety Report 6686544-0 (Version None)
Quarter: 2010Q2

REPORT INFORMATION
  Report Type: 
  Country: None (occurrence: None)
  Receive Date: 20100419
  Receipt Date: 20100414
  Transmission Date: 20101027
  Serious: Yes (Other)
  Sender: FDA-Public Use
  Company Number: CA-ASTRAZENECA-2010SE12189

PATIENT
  Sex: Female

DRUGS (3)
  1. PULMICORT [Suspect]
     Indication: ASTHMA
     Dosage: 200 UG; 2 PUFFS BID
     Route: 055
     Dates: start: 20100128, end: 20100315
  2. PULMICORT [Suspect]
     Route: 055
  3. PULMICORT [Suspect]
     Route: 055
     Dates: start: 20100316

REACTIONS (2)
  - CONDITION AGGRAVATED [None]
  - DRUG INEFFECTIVE [None]
